FAERS Safety Report 20114725 (Version 1)
Quarter: 2021Q4

REPORT INFORMATION
  Report Type: Spontaneous
  Country: US (occurrence: US)
  Receive Date: 20211125
  Receipt Date: 20211125
  Transmission Date: 20220303
  Serious: No
  Sender: FDA-Public Use
  Company Number: US-SA-SAC20211119000407

PATIENT
  Sex: Male

DRUGS (1)
  1. DUPIXENT [Suspect]
     Active Substance: DUPILUMAB
     Indication: Vesicoureteric reflux
     Dosage: 300 MG, QOW
     Route: 058

REACTIONS (2)
  - Fluid retention [Unknown]
  - Product use in unapproved indication [Unknown]
